FAERS Safety Report 8119026-X (Version None)
Quarter: 2012Q1

REPORT INFORMATION
  Report Type: 
  Country: None (occurrence: None)
  Receive Date: 20120207
  Receipt Date: 20120131
  Transmission Date: 20120608
  Serious: Yes (Other)
  Sender: FDA-Public Use
  Company Number: GB-ROCHE-1032096

PATIENT
  Sex: Male

DRUGS (5)
  1. ADALAT [Concomitant]
  2. LUCENTIS [Suspect]
     Indication: PRODUCT USED FOR UNKNOWN INDICATION
     Route: 050
     Dates: start: 20110915, end: 20111013
  3. DOXAZOSIN [Concomitant]
  4. ASPIRIN [Concomitant]
  5. LUCENTIS [Suspect]
     Route: 050
     Dates: start: 20120113

REACTIONS (1)
  - MYOCARDIAL INFARCTION [None]
